FAERS Safety Report 24394787 (Version 2)
Quarter: 2024Q4

REPORT INFORMATION
  Report Type: Spontaneous
  Country: IN (occurrence: IN)
  Receive Date: 20241004
  Receipt Date: 20241015
  Transmission Date: 20250114
  Serious: Yes (Death, Hospitalization, Other)
  Sender: GLENMARK
  Company Number: IN-GLENMARK PHARMACEUTICALS-2024GMK094527

PATIENT

DRUGS (2)
  1. CLOTRIMAZOLE [Suspect]
     Active Substance: CLOTRIMAZOLE
     Indication: Product used for unknown indication
     Dosage: UNK
     Route: 065
  2. CASPOFUNGIN [Suspect]
     Active Substance: CASPOFUNGIN
     Indication: Product used for unknown indication
     Dosage: UNK
     Route: 065

REACTIONS (1)
  - Death [Fatal]
